FAERS Safety Report 10167883 (Version 1)
Quarter: 2014Q2

REPORT INFORMATION
  Report Type: Spontaneous
  Country: US (occurrence: US)
  Receive Date: 20140512
  Receipt Date: 20140512
  Transmission Date: 20141212
  Serious: No
  Sender: FDA-Public Use
  Company Number: US-009507513-1405USA001549

PATIENT
  Sex: Male
  Weight: 115.65 kg

DRUGS (1)
  1. PROPECIA [Suspect]
     Indication: ALOPECIA
     Dosage: UNK
     Route: 048
     Dates: start: 1999, end: 2006

REACTIONS (10)
  - Organic erectile dysfunction [Recovering/Resolving]
  - Fat tissue increased [Unknown]
  - Muscle disorder [Unknown]
  - Hypogonadism male [Unknown]
  - Sperm concentration decreased [Unknown]
  - Spermatozoa morphology abnormal [Unknown]
  - Spermatozoa progressive motility decreased [Unknown]
  - Blood testosterone decreased [Not Recovered/Not Resolved]
  - Gynaecomastia [Unknown]
  - Depression [Unknown]
